FAERS Safety Report 23617330 (Version 1)
Quarter: 2024Q1

REPORT INFORMATION
  Report Type: Spontaneous
  Country: FR (occurrence: FR)
  Receive Date: 20240311
  Receipt Date: 20240311
  Transmission Date: 20240410
  Serious: Yes (Hospitalization)
  Sender: FDA-Public Use
  Company Number: None

PATIENT
  Age: 51 Year
  Sex: Female
  Weight: 90 kg

DRUGS (1)
  1. OFLOXACIN [Suspect]
     Active Substance: OFLOXACIN
     Indication: Otitis externa
     Dosage: 200MG
     Route: 048
     Dates: start: 20231124, end: 20231128

REACTIONS (1)
  - Atrial fibrillation [Recovered/Resolved]

NARRATIVE: CASE EVENT DATE: 20231128
